FAERS Safety Report 13444463 (Version 1)
Quarter: 2017Q2

REPORT INFORMATION
  Report Type: Spontaneous
  Country: US (occurrence: US)
  Receive Date: 20170414
  Receipt Date: 20170414
  Transmission Date: 20170830
  Serious: Yes (Other)
  Sender: FDA-Public Use
  Company Number: US-PFIZER INC-2017161085

PATIENT
  Sex: Female

DRUGS (1)
  1. ADVIL [Suspect]
     Active Substance: IBUPROFEN
     Dosage: UNK

REACTIONS (3)
  - Fibromyalgia [Unknown]
  - Incorrect route of drug administration [Unknown]
  - Autoimmune disorder [Unknown]
